FAERS Safety Report 9438509 (Version 2)
Quarter: 2013Q3

REPORT INFORMATION
  Report Type: Spontaneous
  Country: US (occurrence: US)
  Receive Date: 20130802
  Receipt Date: 20130903
  Transmission Date: 20140515
  Serious: Yes (Death, Hospitalization)
  Sender: FDA-Public Use
  Company Number: US-GLAXOSMITHKLINE-A1019501A

PATIENT
  Age: 67 Year
  Sex: Female

DRUGS (6)
  1. VOTRIENT [Suspect]
     Indication: RENAL CANCER
     Dosage: 600MG PER DAY
     Route: 048
     Dates: start: 20130205
  2. ALEVE [Concomitant]
  3. PRAVASTATIN [Concomitant]
  4. HYDROCHLOROTHIAZIDE TRIAMTERENE [Concomitant]
  5. METOPROLOL [Concomitant]
  6. MICARDIS [Concomitant]

REACTIONS (4)
  - Gastric operation [Unknown]
  - Wound [Unknown]
  - Blood pressure increased [Unknown]
  - Death [Fatal]
